FAERS Safety Report 5764678-2 (Version None)
Quarter: 2008Q2

REPORT INFORMATION
  Report Type: 
  Country: None (occurrence: None)
  Receive Date: 20080611
  Receipt Date: 20080602
  Transmission Date: 20081010
  Serious: Yes (Hospitalization)
  Sender: FDA-Public Use
  Company Number: PHHY2008FR09792

PATIENT

DRUGS (1)
  1. LAMISIL [Suspect]

REACTIONS (2)
  - DYSPHAGIA [None]
  - SALIVARY GLAND DISORDER [None]
